FAERS Safety Report 13557057 (Version 1)
Quarter: 2017Q2

REPORT INFORMATION
  Report Type: Spontaneous
  Country: US (occurrence: US)
  Receive Date: 20170517
  Receipt Date: 20170517
  Transmission Date: 20170830
  Serious: No
  Sender: FDA-Public Use
  Company Number: None

PATIENT
  Age: 23 Year
  Sex: Female
  Weight: 54 kg

DRUGS (1)
  1. JUVEDERM ULTRA [Suspect]
     Active Substance: HYALURONIC ACID
     Indication: SKIN COSMETIC PROCEDURE
     Dosage: ?          OTHER FREQUENCY:1 TIME 11/30/16;?
     Route: 058
     Dates: start: 20161130

REACTIONS (2)
  - Lip oedema [None]
  - Mass [None]

NARRATIVE: CASE EVENT DATE: 20161130
